FAERS Safety Report 9661795 (Version 1)
Quarter: 2013Q4

REPORT INFORMATION
  Report Type: Spontaneous
  Country: US (occurrence: US)
  Receive Date: 20131031
  Receipt Date: 20131031
  Transmission Date: 20140711
  Serious: No
  Sender: FDA-Public Use
  Company Number: US-PURDUE-USA-2010-0059359

PATIENT
  Age: 63 Year
  Sex: Male

DRUGS (9)
  1. OXYCONTIN (NDA 22-272) [Suspect]
     Indication: BACK PAIN
     Dosage: 40 MG, SEE TEXT
     Route: 048
  2. SOTALOL [Concomitant]
     Indication: CARDIAC DISORDER
     Dosage: UNK UNK, UNK
  3. TAMSULOSIN [Concomitant]
     Indication: CARDIAC DISORDER
     Dosage: UNK UNK, UNK
  4. SIMVASTATIN [Concomitant]
     Indication: CARDIAC DISORDER
     Dosage: UNK UNK, UNK
  5. ASPIRIN [Concomitant]
     Indication: PRODUCT USED FOR UNKNOWN INDICATION
     Dosage: UNK UNK, DAILY
  6. KLONOPIN [Concomitant]
     Indication: PRODUCT USED FOR UNKNOWN INDICATION
     Dosage: UNK UNK, UNK
  7. TRAZODONE [Concomitant]
     Indication: PRODUCT USED FOR UNKNOWN INDICATION
     Dosage: UNK UNK, UNK
  8. WELLBUTRIN [Concomitant]
     Indication: PRODUCT USED FOR UNKNOWN INDICATION
     Dosage: UNK UNK, UNK
  9. ALLERGY INJECTIONS [Concomitant]
     Indication: HYPERSENSITIVITY
     Dosage: UNK UNK, 5X/WEEK

REACTIONS (6)
  - Product quality issue [Unknown]
  - Nausea [Recovered/Resolved]
  - Therapeutic response delayed [Not Recovered/Not Resolved]
  - Drug effect decreased [Not Recovered/Not Resolved]
  - Dizziness [Recovered/Resolved]
  - Euphoric mood [Not Recovered/Not Resolved]
